FAERS Safety Report 17681129 (Version 3)
Quarter: 2024Q2

REPORT INFORMATION
  Report Type: Report from Study
  Country: ID (occurrence: None)
  Receive Date: 20200417
  Receipt Date: 20240415
  Transmission Date: 20240716
  Serious: Yes (Death, Other)
  Sender: FDA-Public Use
  Company Number: 2020SE16575

PATIENT
  Age: 22709 Day
  Sex: Male

DRUGS (1)
  1. TAGRISSO [Suspect]
     Active Substance: OSIMERTINIB
     Indication: Non-small cell lung cancer recurrent
     Route: 048
     Dates: start: 20191228

REACTIONS (6)
  - Haemoglobin decreased [Fatal]
  - Platelet count decreased [Fatal]
  - Cough [Unknown]
  - Dyspnoea [Unknown]
  - General physical health deterioration [Recovering/Resolving]
  - Decreased appetite [Unknown]

NARRATIVE: CASE EVENT DATE: 20200410
